FAERS Safety Report 5251373-1 (Version None)
Quarter: 2007Q1

REPORT INFORMATION
  Report Type: 
  Country: None (occurrence: None)
  Receive Date: 20070228
  Receipt Date: 20060502
  Transmission Date: 20070707
  Serious: No
  Sender: FDA-Public Use
  Company Number: US-GLAXOSMITHKLINE-A0604058A

PATIENT
  Age: 48 Year
  Sex: Female

DRUGS (4)
  1. LAMICTAL [Suspect]
     Indication: BIPOLAR DISORDER
     Dosage: 100MG PER DAY
     Route: 048
  2. SEROQUEL [Concomitant]
  3. XANAX [Concomitant]
  4. YASMIN [Concomitant]

REACTIONS (3)
  - ALOPECIA [None]
  - DYSPEPSIA [None]
  - HEADACHE [None]
